FAERS Safety Report 20767296 (Version 1)
Quarter: 2022Q2

REPORT INFORMATION
  Report Type: Spontaneous
  Country: FR (occurrence: FR)
  Receive Date: 20220429
  Receipt Date: 20220429
  Transmission Date: 20220720
  Serious: Yes (Hospitalization)
  Sender: FDA-Public Use
  Company Number: None

PATIENT
  Age: 78 Year
  Sex: Male

DRUGS (9)
  1. PAROXETINE [Suspect]
     Active Substance: PAROXETINE
     Dosage: PAROXETINE (MESILATE DE)
     Route: 065
  2. REVLIMID [Suspect]
     Active Substance: LENALIDOMIDE
     Indication: B-cell lymphoma stage III
     Route: 065
     Dates: start: 202106
  3. NEURONTIN [Concomitant]
     Active Substance: GABAPENTIN
  4. VALACYCLOVIR HYDROCHLORIDE [Concomitant]
     Active Substance: VALACYCLOVIR HYDROCHLORIDE
  5. IRBESARTAN [Concomitant]
     Active Substance: IRBESARTAN
  6. FUROSEMIDE [Concomitant]
     Active Substance: FUROSEMIDE
  7. BISOPROLOL FUMARATE [Concomitant]
     Active Substance: BISOPROLOL FUMARATE
     Dosage: BISOPROLOL (FUMARATE DE)
  8. ALPRAZOLAM [Concomitant]
     Active Substance: ALPRAZOLAM
  9. ALLOPURINOL [Concomitant]
     Active Substance: ALLOPURINOL

REACTIONS (1)
  - Interstitial lung disease [Recovering/Resolving]

NARRATIVE: CASE EVENT DATE: 20220323
